FAERS Safety Report 5162330-8 (Version None)
Quarter: 2006Q4

REPORT INFORMATION
  Report Type: 
  Country: None (occurrence: None)
  Receive Date: 20061130
  Receipt Date: 20010227
  Transmission Date: 20070319
  Serious: Yes (Hospitalization)
  Sender: FDA-Public Use
  Company Number: FR-MERCK-01036001

PATIENT
  Sex: Male
  Weight: 3 kg

DRUGS (9)
  1. CRIXIVAN [Suspect]
     Indication: HIV INFECTION
     Route: 064
  2. LAMIVUDINE [Concomitant]
     Indication: HIV INFECTION
     Route: 064
  3. STAVUDINE [Concomitant]
     Indication: HIV INFECTION
     Route: 064
  4. ZIDOVUDINE [Concomitant]
     Indication: HIV INFECTION
     Route: 064
  5. ZIDOVUDINE [Concomitant]
     Indication: INFECTION PROPHYLAXIS
     Route: 064
  6. MULTI-VITAMINS [Concomitant]
     Route: 064
  7. IRON (UNSPECIFIED) [Concomitant]
     Route: 064
  8. PHLOROGLUCINOL [Concomitant]
     Route: 064
  9. MAGNESIUM LACTATE AND PYRIDOXINE [Concomitant]
     Route: 064

REACTIONS (6)
  - ALANINE AMINOTRANSFERASE INCREASED [None]
  - ASPARTATE AMINOTRANSFERASE INCREASED [None]
  - BLOOD LACTIC ACID INCREASED [None]
  - HYPERTRIGLYCERIDAEMIA [None]
  - NEUTROPENIA [None]
  - THROMBOCYTHAEMIA [None]
